FAERS Safety Report 25498864 (Version 1)
Quarter: 2025Q3

REPORT INFORMATION
  Report Type: Spontaneous
  Country: GB (occurrence: GB)
  Receive Date: 20250701
  Receipt Date: 20250701
  Transmission Date: 20251021
  Serious: Yes (Other)
  Sender: BAYER HEALTHCARE PHARMACEUTICALS INC.
  Company Number: None

PATIENT
  Age: 70 Year
  Sex: Male
  Weight: 62 kg

DRUGS (3)
  1. CIPROFLOXACIN [Suspect]
     Active Substance: CIPROFLOXACIN
     Indication: Infection
     Dosage: 750MG TWICE A DAY
     Route: 048
     Dates: start: 20250207, end: 20250222
  2. Ibrufen [Concomitant]
     Indication: Pain
     Dates: start: 20250226
  3. OMEPRAZOLE [Concomitant]
     Active Substance: OMEPRAZOLE
     Indication: Pain

REACTIONS (8)
  - Inappropriate schedule of product administration [Unknown]
  - Toxicity to various agents [Not Recovered/Not Resolved]
  - Depression [Recovering/Resolving]
  - Incorrect dosage administered [Unknown]
  - Arthralgia [Recovering/Resolving]
  - Pain [Unknown]
  - Stress [None]
  - Food poisoning [None]

NARRATIVE: CASE EVENT DATE: 20250310
